FAERS Safety Report 24265522 (Version 2)
Quarter: 2024Q3

REPORT INFORMATION
  Report Type: Spontaneous
  Country: TW (occurrence: TW)
  Receive Date: 20240829
  Receipt Date: 20240904
  Transmission Date: 20241017
  Serious: Yes (Death, Hospitalization, Other)
  Sender: MERCK
  Company Number: TW-009507513-2408TWN008898

PATIENT
  Age: 63 Year
  Sex: Female

DRUGS (1)
  1. PEMBROLIZUMAB [Suspect]
     Active Substance: PEMBROLIZUMAB
     Indication: Squamous cell carcinoma of lung
     Dosage: UNKNOWN
     Route: 065

REACTIONS (4)
  - Immune-mediated myocarditis [Fatal]
  - Cardiogenic shock [Fatal]
  - Rhabdomyolysis [Unknown]
  - Immune-mediated dermatitis [Unknown]
